FAERS Safety Report 8035738-0 (Version None)
Quarter: 2011Q4

REPORT INFORMATION
  Report Type: 
  Country: None (occurrence: None)
  Receive Date: 20111227
  Receipt Date: 20111213
  Transmission Date: 20120403
  Serious: Yes (Hospitalization)
  Sender: FDA-Public Use
  Company Number: 2011SP058401

PATIENT
  Sex: Female

DRUGS (3)
  1. RIBAVIRIN [Suspect]
     Indication: HEPATITIS C
     Dates: start: 20111107, end: 20111211
  2. BOCEPREVIR (SCH-503034) [Suspect]
     Indication: HEPATITIS C
     Dates: start: 20111204, end: 20111211
  3. PEG-INTRON [Suspect]
     Indication: HEPATITIS C
     Dates: start: 20111107, end: 20111211

REACTIONS (2)
  - HAEMORRHAGIC EROSIVE GASTRITIS [None]
  - HAEMORRHAGIC ANAEMIA [None]
